FAERS Safety Report 8198259-0 (Version None)
Quarter: 2012Q1

REPORT INFORMATION
  Report Type: 
  Country: None (occurrence: None)
  Receive Date: 20120309
  Receipt Date: 20111221
  Transmission Date: 20120608
  Serious: No
  Sender: FDA-Public Use
  Company Number: US-AMGEN-USASP2011035367

PATIENT
  Age: 73 Year
  Sex: Female

DRUGS (8)
  1. CALCIUM [Concomitant]
  2. RELIV [Concomitant]
     Dosage: UNK UNK, QD
  3. PROLIA [Suspect]
     Indication: OSTEOPOROSIS POSTMENOPAUSAL
     Dosage: UNK UNK, Q6MO
     Dates: start: 20110623
  4. FOLIC ACID [Concomitant]
  5. METHOTREXATE [Concomitant]
  6. VITAMIN D [Concomitant]
  7. VITAMIN D [Concomitant]
     Dosage: 200 MG, QD
  8. PLAQUENIL [Concomitant]
     Dosage: UNK

REACTIONS (7)
  - URTICARIA [None]
  - RHEUMATOID ARTHRITIS [None]
  - PAIN [None]
  - PRURITUS [None]
  - INFLUENZA LIKE ILLNESS [None]
  - NASOPHARYNGITIS [None]
  - ERYTHEMA [None]
